FAERS Safety Report 20077112 (Version 1)
Quarter: 2021Q4

REPORT INFORMATION
  Report Type: Report from Study
  Country: US (occurrence: US)
  Receive Date: 20211116
  Receipt Date: 20211116
  Transmission Date: 20220303
  Serious: No
  Sender: FDA-Public Use
  Company Number: US-TG THERAPEUTICS INC.-TGT002207

PATIENT
  Sex: Female

DRUGS (1)
  1. UKONIQ [Suspect]
     Active Substance: UMBRALISIB TOSYLATE
     Indication: Follicular lymphoma
     Dosage: 800 MILLIGRAM, QD (WITH FOOD)
     Route: 048

REACTIONS (1)
  - Diarrhoea [Unknown]
